APPROVED DRUG PRODUCT: CHLORDIAZEPOXIDE HYDROCHLORIDE
Active Ingredient: CHLORDIAZEPOXIDE HYDROCHLORIDE
Strength: 10MG
Dosage Form/Route: CAPSULE;ORAL
Application: A084920 | Product #001
Applicant: UPSHER SMITH LABORATORIES INC
Approved: Approved Prior to Jan 1, 1982 | RLD: Yes | RS: No | Type: DISCN